FAERS Safety Report 7606383-3 (Version None)
Quarter: 2011Q3

REPORT INFORMATION
  Report Type: 
  Country: None (occurrence: None)
  Receive Date: 20110713
  Receipt Date: 20110503
  Transmission Date: 20111222
  Serious: Yes (Other)
  Sender: FDA-Public Use
  Company Number: CA-JNJFOC-20110507178

PATIENT
  Sex: Female
  Weight: 58.6 kg

DRUGS (4)
  1. SOLU-CORTEF [Concomitant]
     Indication: PREMEDICATION
     Route: 042
  2. REMICADE [Suspect]
     Indication: CROHN'S DISEASE
     Route: 042
  3. BENADRYL [Concomitant]
     Indication: PREMEDICATION
     Route: 042
  4. TYLENOL-500 [Concomitant]
     Indication: PREMEDICATION
     Route: 048

REACTIONS (12)
  - DYSPNOEA [None]
  - RASH [None]
  - DIZZINESS [None]
  - TACHYCARDIA [None]
  - FLUSHING [None]
  - INFUSION RELATED REACTION [None]
  - FATIGUE [None]
  - PARAESTHESIA [None]
  - CHEST DISCOMFORT [None]
  - HYPOTENSION [None]
  - URTICARIA [None]
  - NAUSEA [None]
